FAERS Safety Report 4845372-9 (Version None)
Quarter: 2005Q4

REPORT INFORMATION
  Report Type: 
  Country: None (occurrence: None)
  Receive Date: 20051125
  Receipt Date: 20051111
  Transmission Date: 20060501
  Serious: Yes (Disabling)
  Sender: FDA-Public Use
  Company Number: 12879

PATIENT
  Age: 53 Year
  Sex: Female

DRUGS (10)
  1. METHOBLASTIN [Suspect]
     Indication: PSORIATIC ARTHROPATHY
     Dosage: 10 MG WEEKLY INJ
  2. METHOBLASTIN [Suspect]
     Indication: PSORIATIC ARTHROPATHY
     Dosage: 20 MG WEEKLY PO
     Route: 048
  3. METHOBLASTIN [Suspect]
     Indication: PSORIATIC ARTHROPATHY
     Dosage: 25 MG WEEKLY PO
     Route: 048
     Dates: start: 20030101
  4. METHOBLASTIN [Suspect]
     Indication: PSORIATIC ARTHROPATHY
     Dosage: 22.5 MG WEEKLY PO
     Route: 048
     Dates: start: 20050801
  5. PREDNISONE [Concomitant]
  6. SALAZOPYRIN [Concomitant]
  7. FOLIC ACID [Concomitant]
  8. PREMARIN [Concomitant]
  9. PANAMAX [Concomitant]
  10. CALTRATE [Concomitant]

REACTIONS (8)
  - ACTIVITIES OF DAILY LIVING IMPAIRED [None]
  - CHRONIC OBSTRUCTIVE PULMONARY DISEASE [None]
  - CONDITION AGGRAVATED [None]
  - EMPHYSEMA [None]
  - FATIGUE [None]
  - HEPATIC ENZYME ABNORMAL [None]
  - PSORIASIS [None]
  - WEIGHT DECREASED [None]
